FAERS Safety Report 16762169 (Version 1)
Quarter: 2019Q3

REPORT INFORMATION
  Report Type: Report from Study
  Country: None (occurrence: US)
  Receive Date: 20190830
  Receipt Date: 20190830
  Transmission Date: 20191005
  Serious: Yes (Other)
  Sender: FDA-Public Use
  Company Number: US-ABBVIE-19K-163-2904717-00

PATIENT
  Sex: Male
  Weight: 80.81 kg

DRUGS (2)
  1. DEPAKOTE [Suspect]
     Active Substance: DIVALPROEX SODIUM
     Dosage: DOSE INCREASED
     Route: 048
  2. DEPAKOTE [Suspect]
     Active Substance: DIVALPROEX SODIUM
     Indication: EPILEPSY
     Route: 048
     Dates: start: 1999

REACTIONS (4)
  - Seizure [Recovered/Resolved]
  - Tongue haemorrhage [Recovered/Resolved]
  - Insomnia [Unknown]
  - Tongue biting [Recovered/Resolved]

NARRATIVE: CASE EVENT DATE: 2019
